FAERS Safety Report 17573280 (Version 2)
Quarter: 2020Q3

REPORT INFORMATION
  Report Type: Spontaneous
  Country: FR (occurrence: FR)
  Receive Date: 20200323
  Receipt Date: 20200714
  Transmission Date: 20201102
  Serious: Yes (Hospitalization)
  Sender: FDA-Public Use
  Company Number: FR-MYLANLABS-2020M1029477

PATIENT
  Age: 81 Year
  Sex: Male
  Weight: 100 kg

DRUGS (15)
  1. PIPERACILLIN AND TAZOBACTAM [Suspect]
     Active Substance: PIPERACILLIN SODIUM\TAZOBACTAM SODIUM
     Indication: STAPHYLOCOCCAL INFECTION
     Dosage: 3 DOSAGE FORM, QD
     Route: 042
     Dates: start: 20200209, end: 20200212
  2. AMLODIPINE [Suspect]
     Active Substance: AMLODIPINE BESYLATE
     Indication: HYPERTENSION
     Dosage: 5 MILLIGRAM, QD
     Route: 048
     Dates: start: 20200218
  3. MOMETASONE                         /00908302/ [Concomitant]
  4. FUROSEMIDE ARROW [Concomitant]
     Active Substance: FUROSEMIDE
     Dosage: UNK
  5. DOLIPRANE [Concomitant]
     Active Substance: ACETAMINOPHEN
  6. ADENURIC [Concomitant]
     Active Substance: FEBUXOSTAT
     Dosage: UNK
  7. CLINDAMYCINE MYLAN 300 MG, CAPSULES [Suspect]
     Active Substance: CLINDAMYCIN
     Indication: STAPHYLOCOCCAL INFECTION
     Dosage: 1800 MILLIGRAM, QD
     Route: 048
     Dates: start: 20200210, end: 20200214
  8. SPIRONOLACTONE ARROW [Concomitant]
     Active Substance: SPIRONOLACTONE
     Dosage: UNK
  9. LOVENOX [Concomitant]
     Active Substance: ENOXAPARIN SODIUM
  10. KARDEGIC [Concomitant]
     Active Substance: ASPIRIN DL-LYSINE
     Dosage: UNK
  11. MOVICOL [Concomitant]
     Active Substance: POLYETHYLENE GLYCOL 3350\POTASSIUM CHLORIDE\SODIUM BICARBONATE\SODIUM CHLORIDE
  12. METFORMINE ARROW [Concomitant]
     Active Substance: METFORMIN HYDROCHLORIDE
     Dosage: UNK
  13. RAMIPRIL MYLAN [Concomitant]
     Active Substance: RAMIPRIL
     Dosage: UNK
  14. AMOXICILLINE/ACIDE CLAVULANIQ. SANDOZ [Suspect]
     Active Substance: AMOXICILLIN\CLAVULANIC ACID
     Indication: STAPHYLOCOCCAL INFECTION
     Dosage: 6 DOSAGE FORM, QD
     Route: 048
     Dates: start: 20200212, end: 20200219
  15. ATORVASTATINE ARROW [Concomitant]
     Active Substance: ATORVASTATIN
     Dosage: UNK

REACTIONS (6)
  - Rash erythematous [Recovered/Resolved]
  - Rash morbilliform [Recovered/Resolved]
  - Rash pruritic [Recovered/Resolved]
  - Toxic skin eruption [Recovered/Resolved]
  - Skin burning sensation [Recovered/Resolved]
  - Rash [Recovered/Resolved]

NARRATIVE: CASE EVENT DATE: 20200218
